FAERS Safety Report 13714491 (Version 6)
Quarter: 2018Q2

REPORT INFORMATION
  Report Type: Report from Study
  Country: IT (occurrence: IT)
  Receive Date: 20170704
  Receipt Date: 20180419
  Transmission Date: 20180711
  Serious: Yes (Other)
  Sender: FDA-Public Use
  Company Number: PHHY2017IT001175

PATIENT
  Age: 42 Year
  Sex: Female

DRUGS (4)
  1. CYMBALTA [Concomitant]
     Active Substance: DULOXETINE HYDROCHLORIDE
     Indication: ANXIETY DISORDER
     Dosage: 60 UG, QD
     Route: 065
     Dates: start: 20070614
  2. TECFIDERA [Concomitant]
     Active Substance: DIMETHYL FUMARATE
     Indication: RELAPSING-REMITTING MULTIPLE SCLEROSIS
     Dosage: 240 UG, BID
     Route: 065
     Dates: start: 20150701
  3. FOLIC ACID. [Concomitant]
     Active Substance: FOLIC ACID
     Indication: PRODUCT USED FOR UNKNOWN INDICATION
     Dosage: 5 UG, QD
     Route: 065
     Dates: start: 201603
  4. GILENYA [Suspect]
     Active Substance: FINGOLIMOD HYDROCHLORIDE
     Indication: RELAPSING-REMITTING MULTIPLE SCLEROSIS
     Dosage: 0.5 MG, QD
     Route: 048
     Dates: start: 20131022, end: 20150428

REACTIONS (3)
  - Cervical dysplasia [Recovering/Resolving]
  - Human papilloma virus test positive [Recovering/Resolving]
  - Mood altered [Unknown]

NARRATIVE: CASE EVENT DATE: 20160622
